FAERS Safety Report 25539592 (Version 1)
Quarter: 2025Q3

REPORT INFORMATION
  Report Type: Spontaneous
  Country: EU (occurrence: EU)
  Receive Date: 20250710
  Receipt Date: 20250710
  Transmission Date: 20251021
  Serious: Yes (Other)
  Sender: MERCK SHARP & DOHME LLC
  Company Number: EU-009507513-2305241

PATIENT
  Age: 77 Year
  Sex: Female

DRUGS (2)
  1. JANUMET [Suspect]
     Active Substance: METFORMIN HYDROCHLORIDE\SITAGLIPTIN PHOSPHATE
     Route: 048
     Dates: start: 2010
  2. TICAGRELOR [Concomitant]
     Active Substance: TICAGRELOR

REACTIONS (4)
  - Myocardial infarction [Recovered/Resolved]
  - Medical induction of coma [Recovered/Resolved]
  - Acute pulmonary oedema [Recovered/Resolved]
  - Bronchitis [Unknown]
